FAERS Safety Report 14959834 (Version 1)
Quarter: 2018Q2

REPORT INFORMATION
  Report Type: Spontaneous
  Country: FI (occurrence: FI)
  Receive Date: 20180531
  Receipt Date: 20180531
  Transmission Date: 20180711
  Serious: Yes (Death)
  Sender: FDA-Public Use
  Company Number: FI-ALLERGAN-1828466US

PATIENT
  Age: 91 Year
  Sex: Female

DRUGS (15)
  1. PARACETAMOL RATIOPHARM [Concomitant]
     Active Substance: ACETAMINOPHEN
     Dosage: 3 G, QD
     Dates: start: 20000101
  2. EMCONCOR [Concomitant]
     Active Substance: BISOPROLOL FUMARATE
     Dosage: 2.5 MG, QD
     Route: 048
     Dates: start: 20170113
  3. ORMOX [Concomitant]
     Dosage: UNK
     Route: 048
     Dates: start: 20000101
  4. MEMANTINE HCL - BP [Suspect]
     Active Substance: MEMANTINE
     Indication: MEMORY IMPAIRMENT
     Dosage: 10 MG, QD
     Route: 048
     Dates: start: 20180308, end: 20180321
  5. INNOVAIR [Concomitant]
     Active Substance: BECLOMETHASONE DIPROPIONATE\FORMOTEROL
     Dosage: 4 DF, QD
     Route: 055
     Dates: start: 20170315
  6. KALEORID [Concomitant]
     Active Substance: POTASSIUM CHLORIDE
     Dosage: 3 G, QD
     Route: 048
     Dates: start: 20170111
  7. VOLTAREN [Concomitant]
     Active Substance: DICLOFENAC SODIUM
     Dosage: UNK UNK, PRN
     Route: 003
     Dates: start: 20110613
  8. LAXOBERON [Concomitant]
     Active Substance: SODIUM PICOSULFATE
     Dosage: UNK UNK, PRN
     Route: 048
     Dates: start: 20000101
  9. VENTOLINE [Concomitant]
     Active Substance: ALBUTEROL
     Dosage: UNK UNK, PRN
     Route: 055
     Dates: start: 20170113
  10. FURESIS [Concomitant]
     Active Substance: FUROSEMIDE
     Dosage: UNK
     Route: 048
     Dates: end: 20180319
  11. NITROGLYCERIN. [Concomitant]
     Active Substance: NITROGLYCERIN
     Dosage: UNK UNK, PRN
     Route: 060
     Dates: start: 20110118
  12. THYROXIN [Suspect]
     Active Substance: LEVOTHYROXINE
     Indication: HYPOTHYROIDISM
     Dosage: 25 ?G, QD
     Route: 048
     Dates: start: 20180306, end: 20180326
  13. ALLONOL [Suspect]
     Active Substance: ALLOPURINOL
     Indication: GOUT
     Dosage: 100 MG, QD
     Route: 048
     Dates: start: 20180129, end: 20180326
  14. PRIMASPAN [Suspect]
     Active Substance: ASPIRIN
     Indication: CORONARY ARTERY DISEASE
     Dosage: 100 MG, QD
     Route: 047
     Dates: start: 20101018, end: 20180326
  15. ZAROXOLYN [Suspect]
     Active Substance: METOLAZONE
     Indication: CARDIAC FAILURE
     Dosage: 5 MG, Q WEEK
     Route: 048
     Dates: start: 20180123, end: 20180326

REACTIONS (8)
  - Haematoma [Fatal]
  - Rash [Fatal]
  - Off label use [Fatal]
  - Diarrhoea [Fatal]
  - Cardiac failure [Fatal]
  - Skin reaction [Fatal]
  - Pain [Fatal]
  - Urticaria [Fatal]

NARRATIVE: CASE EVENT DATE: 20180308
